FAERS Safety Report 9263494 (Version 1)
Quarter: 2013Q2

REPORT INFORMATION
  Report Type: Spontaneous
  Country: US (occurrence: US)
  Receive Date: 20130430
  Receipt Date: 20130430
  Transmission Date: 20140414
  Serious: No
  Sender: FDA-Public Use
  Company Number: US-ABBOTT-13P-163-1066111-00

PATIENT
  Sex: Female
  Weight: 42.22 kg

DRUGS (3)
  1. CREON [Suspect]
     Indication: PANCREATIC DISORDER
     Dosage: 2 TABLETS PRIOR TO MEALS
     Route: 048
  2. CREON [Suspect]
     Dosage: 4 TABLET PRIOR TO MEALS
  3. OXYCODONE [Concomitant]
     Indication: SCOLIOSIS

REACTIONS (2)
  - Expired drug administered [Unknown]
  - Drug ineffective [Recovered/Resolved]
